FAERS Safety Report 4902104-3 (Version None)
Quarter: 2006Q1

REPORT INFORMATION
  Report Type: 
  Country: None (occurrence: None)
  Receive Date: 20060206
  Receipt Date: 20060127
  Transmission Date: 20060701
  Serious: Yes (Other)
  Sender: FDA-Public Use
  Company Number: US-ABBOTT-06P-163-0323536-00

PATIENT
  Sex: Male
  Weight: 65.83 kg

DRUGS (7)
  1. ZEMPLAR CAPSULES 1MCG [Suspect]
     Indication: RENAL DISORDER
     Route: 048
     Dates: start: 20060123
  2. AMLODIPINE BESYLATE [Concomitant]
     Indication: HYPERTENSION
     Route: 048
  3. METOPROLOL [Concomitant]
     Indication: HYPERTENSION
     Route: 048
  4. VITORIN [Concomitant]
     Indication: BLOOD CHOLESTEROL
     Dosage: 10MG/40MG QD
     Route: 048
  5. CLOPIDOGREL BISULFATE [Concomitant]
     Indication: BLOOD CHOLESTEROL
     Route: 048
  6. VALSARTAN [Concomitant]
     Indication: HYPERTENSION
     Route: 048
  7. ACETYLSALICYLIC ACID SRT [Concomitant]
     Indication: THROMBOSIS PROPHYLAXIS
     Route: 048

REACTIONS (5)
  - HEART RATE INCREASED [None]
  - HYPOTENSION [None]
  - SYNCOPE [None]
  - SYNCOPE VASOVAGAL [None]
  - UNEVALUABLE EVENT [None]
